FAERS Safety Report 8668353 (Version 3)
Quarter: 2015Q2

REPORT INFORMATION
  Report Type: Report from Study
  Country: US (occurrence: US)
  Receive Date: 20120717
  Receipt Date: 20150622
  Transmission Date: 20150821
  Serious: Yes (Death)
  Sender: FDA-Public Use
  Company Number: US-ROCHE-1087004

PATIENT
  Sex: Male

DRUGS (2)
  1. POVIDONE [Concomitant]
     Active Substance: POVIDONE
  2. LUCENTIS [Suspect]
     Active Substance: RANIBIZUMAB
     Indication: RETINAL OEDEMA
     Route: 042

REACTIONS (1)
  - Death [Fatal]
